FAERS Safety Report 14566710 (Version 1)
Quarter: 2018Q1

REPORT INFORMATION
  Report Type: Spontaneous
  Country: IT (occurrence: IT)
  Receive Date: 20180223
  Receipt Date: 20180223
  Transmission Date: 20180509
  Serious: Yes (Other)
  Sender: FDA-Public Use
  Company Number: IT-LUPIN PHARMACEUTICALS INC.-2018-01293

PATIENT
  Age: 84 Year
  Sex: Female

DRUGS (2)
  1. ESOMEPRAZOLO [Suspect]
     Active Substance: ESOMEPRAZOLE
     Indication: PRODUCT USED FOR UNKNOWN INDICATION
     Dosage: UNK
     Route: 048
     Dates: start: 20171117, end: 20171119
  2. LEVETIRACETAM. [Suspect]
     Active Substance: LEVETIRACETAM
     Indication: EPILEPSY
     Dosage: UNK
     Route: 048
     Dates: start: 20171117, end: 20171124

REACTIONS (3)
  - Haematemesis [Recovered/Resolved]
  - Dyspepsia [Recovered/Resolved]
  - Melaena [Recovered/Resolved]

NARRATIVE: CASE EVENT DATE: 20171117
